FAERS Safety Report 8217741-0 (Version None)
Quarter: 2012Q1

REPORT INFORMATION
  Report Type: 
  Country: None (occurrence: None)
  Receive Date: 20120319
  Receipt Date: 20120308
  Transmission Date: 20120608
  Serious: Yes (Other)
  Sender: FDA-Public Use
  Company Number: JP-JNJFOC-20111105770

PATIENT
  Sex: Female
  Weight: 41 kg

DRUGS (16)
  1. ALENDRONATE SODIUM [Concomitant]
     Indication: PAIN
     Route: 048
     Dates: start: 20101115, end: 20110123
  2. LENDORMIN [Concomitant]
     Indication: PAIN
     Route: 048
     Dates: start: 20101117
  3. FENTANYL-100 [Suspect]
     Indication: PAIN
     Route: 062
     Dates: start: 20101127
  4. CODEINE PHOSPHATE [Concomitant]
     Route: 048
     Dates: start: 20101111, end: 20101124
  5. MOTILIUM [Concomitant]
     Indication: VOMITING
     Route: 048
     Dates: start: 20101128, end: 20101216
  6. LOXONIN [Concomitant]
     Indication: PAIN
     Route: 062
     Dates: start: 20100830
  7. CODEINE PHOSPHATE [Concomitant]
     Indication: PAIN
     Route: 048
     Dates: start: 20101204
  8. MAGMITT [Concomitant]
     Route: 048
     Dates: start: 20101125, end: 20101216
  9. CODEINE PHOSPHATE [Concomitant]
     Route: 048
     Dates: start: 20101125, end: 20101127
  10. CODEINE PHOSPHATE [Concomitant]
     Route: 048
     Dates: start: 20101225
  11. CODEINE PHOSPHATE [Concomitant]
     Route: 048
     Dates: start: 20101211
  12. MOTILIUM [Concomitant]
     Indication: NAUSEA
     Route: 048
     Dates: start: 20101128, end: 20101216
  13. GABAPENTIN [Concomitant]
     Indication: PAIN
     Route: 048
     Dates: start: 20101202
  14. CODEINE PHOSPHATE [Concomitant]
     Route: 048
     Dates: start: 20101127
  15. CODEINE PHOSPHATE [Concomitant]
     Route: 048
     Dates: start: 20101218
  16. CODEINE PHOSPHATE [Concomitant]
     Route: 048

REACTIONS (3)
  - VOMITING [None]
  - NAUSEA [None]
  - WOUND INFECTION [None]
